FAERS Safety Report 8511677-3 (Version None)
Quarter: 2012Q3

REPORT INFORMATION
  Report Type: 
  Country: None (occurrence: None)
  Receive Date: 20120716
  Receipt Date: 20120706
  Transmission Date: 20120928
  Serious: Yes (Other)
  Sender: FDA-Public Use
  Company Number: US-ASTRAZENECA-2012SE24817

PATIENT
  Age: 776 Month
  Sex: Female

DRUGS (2)
  1. SIMVASTATIN [Suspect]
     Route: 065
  2. CRESTOR [Suspect]
     Route: 048
     Dates: end: 20100301

REACTIONS (1)
  - MYOCARDIAL INFARCTION [None]
